FAERS Safety Report 19354528 (Version 1)
Quarter: 2021Q2

REPORT INFORMATION
  Report Type: Spontaneous
  Country: US (occurrence: US)
  Receive Date: 20210601
  Receipt Date: 20210601
  Transmission Date: 20210717
  Serious: No
  Sender: FDA-Public Use
  Company Number: None

PATIENT
  Age: 73 Year
  Sex: Male
  Weight: 103 kg

DRUGS (1)
  1. WARFARIN (WARFARIN NA (TEVA) 5MG TAB) [Suspect]
     Active Substance: WARFARIN SODIUM
     Indication: ATRIAL FIBRILLATION
     Dates: start: 20201029, end: 20210405

REACTIONS (6)
  - Toxic encephalopathy [None]
  - Blood loss anaemia [None]
  - Transaminases increased [None]
  - International normalised ratio increased [None]
  - Acute kidney injury [None]
  - Upper gastrointestinal haemorrhage [None]

NARRATIVE: CASE EVENT DATE: 20210405
